FAERS Safety Report 7657947-2 (Version None)
Quarter: 2011Q3

REPORT INFORMATION
  Report Type: 
  Country: None (occurrence: None)
  Receive Date: 20110805
  Receipt Date: 20110726
  Transmission Date: 20111222
  Serious: No
  Sender: FDA-Public Use
  Company Number: US-BIOGENIDEC-2011BI028094

PATIENT
  Age: 26 Year
  Sex: Female

DRUGS (2)
  1. AVONEX [Suspect]
     Indication: MULTIPLE SCLEROSIS
     Route: 030
     Dates: start: 19991001, end: 20040301
  2. AVONEX [Suspect]
     Route: 030
     Dates: start: 20090310

REACTIONS (7)
  - NAUSEA [None]
  - TREMOR [None]
  - DIZZINESS [None]
  - CENTRAL NERVOUS SYSTEM LESION [None]
  - WEIGHT DECREASED [None]
  - MULTIPLE SCLEROSIS RELAPSE [None]
  - IMPAIRED DRIVING ABILITY [None]
